FAERS Safety Report 19027683 (Version 1)
Quarter: 2021Q1

REPORT INFORMATION
  Report Type: Spontaneous
  Country: US (occurrence: US)
  Receive Date: 20210319
  Receipt Date: 20210319
  Transmission Date: 20210420
  Serious: No
  Sender: FDA-Public Use
  Company Number: US-AMGEN-USASP2021040432

PATIENT
  Age: 11 Year
  Sex: Female
  Weight: 45.5 kg

DRUGS (3)
  1. PLERIXAFOR [Suspect]
     Active Substance: PLERIXAFOR
     Indication: HAEMATOPOIETIC STEM CELL MOBILISATION
     Dosage: UNK
     Route: 065
  2. FILGRASTIM [Suspect]
     Active Substance: FILGRASTIM
     Dosage: 5 MICROGRAM/KILOGRAM, QD
     Route: 042
  3. FILGRASTIM [Suspect]
     Active Substance: FILGRASTIM
     Indication: HAEMATOPOIETIC STEM CELL MOBILISATION
     Dosage: UNK (10?20 MICROGRAM/KILOGRAM/DOSE) FOR 5 DAYS
     Route: 042

REACTIONS (1)
  - Therapy non-responder [Unknown]
